FAERS Safety Report 11909968 (Version 1)
Quarter: 2016Q1

REPORT INFORMATION
  Report Type: Report from Study
  Country: KR (occurrence: KR)
  Receive Date: 20160112
  Receipt Date: 20160112
  Transmission Date: 20160526
  Serious: No
  Sender: FDA-Public Use
  Company Number: PHHY2015KR113246

PATIENT
  Age: 62 Year
  Sex: Male

DRUGS (18)
  1. CELEBREX [Concomitant]
     Active Substance: CELECOXIB
     Indication: ARTHRODESIS
     Dosage: 200 MG, UNK
     Route: 048
     Dates: start: 20150428, end: 20150519
  2. HARNAL [Concomitant]
     Active Substance: TAMSULOSIN HYDROCHLORIDE
     Indication: BENIGN PROSTATIC HYPERPLASIA
     Dosage: 0.2 MG, UNK
     Route: 048
     Dates: start: 20121227
  3. NERISONA [Concomitant]
     Active Substance: DIFLUCORTOLONE VALERATE
     Indication: DYSHIDROTIC ECZEMA
  4. TASIGNA [Suspect]
     Active Substance: NILOTINIB
     Indication: CHRONIC MYELOID LEUKAEMIA
     Dosage: 600 MG, QD
     Route: 048
     Dates: start: 20150317
  5. NERISONA [Concomitant]
     Active Substance: DIFLUCORTOLONE VALERATE
     Indication: PUSTULAR PSORIASIS
     Dosage: 15 G, UNK
     Route: 061
     Dates: start: 20150318
  6. PETHIDINE [Concomitant]
     Active Substance: MEPERIDINE
     Indication: PAIN
     Dosage: 25 MG, UNK
     Route: 065
     Dates: start: 20150428, end: 20150511
  7. NORSPAN-M [Concomitant]
     Indication: PAIN
     Dosage: 1 DF, UNK
     Route: 065
     Dates: start: 20150428, end: 20150510
  8. SALICYLIC ACID. [Concomitant]
     Active Substance: SALICYLIC ACID
     Indication: DYSHIDROTIC ECZEMA
     Dosage: 10 G, UNK
     Route: 061
     Dates: start: 20150318
  9. CRAVIT [Concomitant]
     Active Substance: LEVOFLOXACIN
     Indication: PROPHYLAXIS
     Dosage: 300 MG, QD
     Route: 065
     Dates: start: 20150428, end: 20150512
  10. MYAMBUTOL [Concomitant]
     Active Substance: ETHAMBUTOL HYDROCHLORIDE
     Indication: TUBERCULOSIS
     Dosage: 1200 MG, UNK
     Route: 048
     Dates: start: 20141120, end: 20150512
  11. PYRAZINAMIDE. [Concomitant]
     Active Substance: PYRAZINAMIDE
     Indication: TUBERCULOSIS
     Dosage: 1500 MG, UNK
     Route: 048
     Dates: start: 20141120, end: 20150512
  12. TARGIN [Concomitant]
     Active Substance: NALOXONE HYDROCHLORIDE\OXYCODONE HYDROCHLORIDE
     Indication: MYALGIA
     Dosage: 2 DF (10/5), UNK
     Route: 048
     Dates: start: 20121228
  13. CEFAZEDONE [Concomitant]
     Active Substance: CEFAZEDONE
     Indication: ARTHRODESIS
     Dosage: 3 G, UNK
     Route: 042
     Dates: start: 20150428, end: 20150428
  14. IRCODON [Concomitant]
     Indication: MYALGIA
     Dosage: 5 MG, UNK
     Route: 048
     Dates: start: 20121223
  15. ULTRACET [Concomitant]
     Active Substance: ACETAMINOPHEN\TRAMADOL HYDROCHLORIDE
     Indication: ARTHRODESIS
     Dosage: 2 DF, UNK
     Route: 048
     Dates: start: 20150428, end: 20150519
  16. ISONICOTINYL HYDRAZINE [Concomitant]
     Indication: TUBERCULOSIS
     Dosage: 300 MG, UNK
     Route: 048
     Dates: start: 20141120, end: 20150512
  17. TARGIN [Concomitant]
     Active Substance: NALOXONE HYDROCHLORIDE\OXYCODONE HYDROCHLORIDE
     Dosage: 2 DF (20/10), UNK
     Route: 048
     Dates: start: 20121230
  18. ZYLORIC [Concomitant]
     Active Substance: ALLOPURINOL
     Indication: GOUT
     Dosage: 400 MG, UNK
     Route: 048
     Dates: start: 20130401

REACTIONS (1)
  - Chills [Recovered/Resolved]

NARRATIVE: CASE EVENT DATE: 20150407
